FAERS Safety Report 6547417-7 (Version None)
Quarter: 2010Q1

REPORT INFORMATION
  Report Type: 
  Country: None (occurrence: None)
  Receive Date: 20100122
  Receipt Date: 20100118
  Transmission Date: 20100710
  Serious: Yes (Hospitalization)
  Sender: FDA-Public Use
  Company Number: PHHO2009IT15758

PATIENT
  Sex: Male
  Weight: 58.5 kg

DRUGS (6)
  1. CERTICAN [Suspect]
     Indication: RENAL TRANSPLANT
     Dosage: 0.75 BID
     Dates: start: 20091203, end: 20091216
  2. CLOPIDOGREL [Suspect]
  3. ASPIRIN [Suspect]
  4. HEPARIN [Suspect]
  5. CYCLOSPORINE [Concomitant]
  6. STEROIDS NOS [Concomitant]

REACTIONS (5)
  - HAEMATEMESIS [None]
  - HERPES VIRUS INFECTION [None]
  - IMPAIRED HEALING [None]
  - MUCOSAL HAEMORRHAGE [None]
  - OESOPHAGEAL CANDIDIASIS [None]
